FAERS Safety Report 7733954-6 (Version None)
Quarter: 2011Q3

REPORT INFORMATION
  Report Type: 
  Country: None (occurrence: None)
  Receive Date: 20110907
  Receipt Date: 20110708
  Transmission Date: 20111222
  Serious: No
  Sender: FDA-Public Use
  Company Number: US-MUTUAL PHARMACEUTICAL COMPANY, INC.-SFTM20110001

PATIENT
  Sex: Female
  Weight: 57.658 kg

DRUGS (2)
  1. SULFAMETHOXAZOLE AND TRIMETHOPRIM DOUBLE STRENGTH [Suspect]
     Indication: URINARY TRACT INFECTION
     Route: 048
     Dates: start: 20110630, end: 20110701
  2. TOPAMAX [Concomitant]
     Indication: MIGRAINE
     Route: 048
     Dates: start: 20100101

REACTIONS (3)
  - PAIN [None]
  - MIGRAINE [None]
  - PYREXIA [None]
